FAERS Safety Report 21810192 (Version 2)
Quarter: 2023Q1

REPORT INFORMATION
  Report Type: Report from Study
  Country: US (occurrence: US)
  Receive Date: 20230103
  Receipt Date: 20230323
  Transmission Date: 20230417
  Serious: Yes (Hospitalization, Other)
  Sender: FDA-Public Use
  Company Number: US-ABBVIE-4256031

PATIENT
  Sex: Male

DRUGS (2)
  1. VENCLEXTA [Suspect]
     Active Substance: VENETOCLAX
     Indication: Myelodysplastic syndrome
     Dosage: TIME INTERVAL: 0.33333333 DAYS: FORM STRENGTH: 100
     Route: 048
  2. VENCLEXTA [Suspect]
     Active Substance: VENETOCLAX
     Indication: Myelodysplastic syndrome
     Dosage: TIME INTERVAL: 0.33333333 DAYS: FORM STRENGTH: 100
     Route: 048

REACTIONS (2)
  - Bladder neoplasm [Unknown]
  - Off label use [Unknown]
